FAERS Safety Report 4869671-X (Version None)
Quarter: 2005Q4

REPORT INFORMATION
  Report Type: 
  Country: None (occurrence: None)
  Receive Date: 20051223
  Receipt Date: 20051220
  Transmission Date: 20060501
  Serious: Yes (Hospitalization)
  Sender: FDA-Public Use
  Company Number: HQWYE946112DEC05

PATIENT
  Age: 63 Year
  Sex: Male

DRUGS (7)
  1. RAPAMUNE [Suspect]
     Indication: PROPHYLAXIS AGAINST TRANSPLANT REJECTION
     Dosage: 1 MG/2MG ALTERNATE DAYS, ORAL
     Route: 048
     Dates: start: 20050215
  2. PREDNISONE [Concomitant]
  3. ASPIRIN [Concomitant]
  4. PERINDOPRIL (PERINDOPRIL) [Concomitant]
  5. INSULIN [Concomitant]
  6. PANTOPRAZOLE SODIUM [Concomitant]
  7. SULFAMETHOXAZOLE + TRIMETHOPRIM [Concomitant]

REACTIONS (1)
  - DEPRESSION [None]
